FAERS Safety Report 5444539-9 (Version None)
Quarter: 2007Q3

REPORT INFORMATION
  Report Type: 
  Country: None (occurrence: None)
  Receive Date: 20070906
  Receipt Date: 20070829
  Transmission Date: 20080115
  Serious: Yes (Life-Threatening)
  Sender: FDA-Public Use
  Company Number: US-AVENTIS-200715419US

PATIENT
  Sex: Female
  Weight: 124.7 kg

DRUGS (1)
  1. APIDRA [Suspect]
     Indication: DIABETES MELLITUS
     Route: 058
     Dates: start: 20060429

REACTIONS (4)
  - DIABETIC KETOACIDOSIS [None]
  - HYPERGLYCAEMIA [None]
  - NAUSEA [None]
  - VOMITING [None]
